FAERS Safety Report 19627849 (Version 2)
Quarter: 2021Q3

REPORT INFORMATION
  Report Type: Report from Study
  Country: US (occurrence: US)
  Receive Date: 20210728
  Receipt Date: 20210802
  Transmission Date: 20211014
  Serious: Yes (Hospitalization)
  Sender: FDA-Public Use
  Company Number: US-PFIZER INC-2021810371

PATIENT
  Age: 38 Year
  Sex: Male
  Weight: 121.7 kg

DRUGS (7)
  1. METHOTREXATE SODIUM. [Suspect]
     Active Substance: METHOTREXATE SODIUM
     Dosage: 15 MG, ON DAYS1,8,15,22 [OMIT DOSE ON DAY 15,22 FOR CNS3 PATIENTS]; TOTAL DOSE OF THIS COURSE:15 MG
     Route: 037
     Dates: start: 20210601, end: 20210601
  2. VINCRISTINE SULFATE. [Suspect]
     Active Substance: VINCRISTINE SULFATE
     Dosage: 1.5 MG/M2, (MAXIMUM 2 MG) IV ON DAYS15,22,43 AND 50
     Route: 042
  3. CYTARABINE. [Suspect]
     Active Substance: CYTARABINE
     Dosage: 75 MG/M2, IV OR SC ON DAYS 1?4, 8?11, 29?32 AND 36?39; TOTAL DOSE ADMINISTERED THIS COURSE: 700 MG
     Dates: start: 20210601, end: 20210604
  4. CYCLOPHOSPHAMIDE. [Suspect]
     Active Substance: CYCLOPHOSPHAMIDE
     Dosage: 1000 MG/M2, ON DAY1 AND 29; TOTAL DOSE ADMINISTERED THIS COURSE: 2400MG
     Route: 042
     Dates: start: 20210601, end: 20210601
  5. MERCAPTOPURINE. [Suspect]
     Active Substance: MERCAPTOPURINE
     Dosage: 60 MG/M2, ON DAYS1?14 AND 29?42; TOTAL DOSE ADMINISTERED THIS COURSE: 600MG
     Route: 048
     Dates: start: 20210601, end: 20210604
  6. RITUXIMAB. [Suspect]
     Active Substance: RITUXIMAB
     Dosage: 375 MG/M2, ON DAY1,8 AND ON DAY29,36; TOTAL DOSE OF THIS COURSE: 881.3 MG
     Route: 042
     Dates: start: 20210601, end: 20210601
  7. PEG/L?ASPARAGINASE [Suspect]
     Active Substance: PEGASPARGASE
     Dosage: 2000 IU/M2 IV ON DAYS 15 AND 43. (CAP DOSE AT 3750 IU)
     Route: 042

REACTIONS (1)
  - Hyperglycaemia [Recovered/Resolved]

NARRATIVE: CASE EVENT DATE: 20210604
